FAERS Safety Report 8468631 (Version 7)
Quarter: 2012Q4

REPORT INFORMATION
  Report Type: 
  Country: US (occurrence: US)
  Receive Date: 20120320
  Receipt Date: 20120918
  Transmission Date: 20130627
  Serious: Yes (Other)
  Sender: FDA-Public Use
  Company Number: US-ASTRAZENECA-2012SE16854

PATIENT
  Age: 59 Day
  Sex: Female
  Weight: 83 kg

DRUGS (84)
  1. NEXIUM [Suspect]
     Indication: GASTROOESOPHAGEAL REFLUX DISEASE
     Route: 048
     Dates: start: 2009, end: 2011
  2. NEXIUM [Suspect]
     Indication: CHEST PAIN
     Route: 048
     Dates: start: 2009, end: 2011
  3. NEXIUM [Suspect]
     Indication: GASTROOESOPHAGEAL REFLUX DISEASE
     Route: 048
     Dates: start: 20090519
  4. NEXIUM [Suspect]
     Indication: CHEST PAIN
     Route: 048
     Dates: start: 20090519
  5. NEXIUM [Suspect]
     Indication: GASTROOESOPHAGEAL REFLUX DISEASE
     Route: 048
     Dates: start: 20100902
  6. NEXIUM [Suspect]
     Indication: CHEST PAIN
     Route: 048
     Dates: start: 20100902
  7. NEXIUM [Suspect]
     Indication: GASTROOESOPHAGEAL REFLUX DISEASE
     Route: 048
     Dates: start: 2011
  8. NEXIUM [Suspect]
     Indication: CHEST PAIN
     Route: 048
     Dates: start: 2011
  9. NEXIUM [Suspect]
     Indication: GASTROOESOPHAGEAL REFLUX DISEASE
     Route: 048
     Dates: start: 20111010
  10. NEXIUM [Suspect]
     Indication: CHEST PAIN
     Route: 048
     Dates: start: 20111010
  11. NEXIUM [Suspect]
     Indication: GASTROOESOPHAGEAL REFLUX DISEASE
     Route: 048
     Dates: start: 20111024
  12. NEXIUM [Suspect]
     Indication: CHEST PAIN
     Route: 048
     Dates: start: 20111024
  13. ROLAIDS [Concomitant]
  14. VITAMIN E [Concomitant]
     Dosage: 1000 UNIT 3 PILLS DAILY
  15. POTASSIUM [Concomitant]
     Route: 048
  16. ATENOLOL [Concomitant]
     Indication: HYPERTENSIVE HEART DISEASE
  17. ATENOLOL [Concomitant]
     Indication: HYPERTENSION
  18. ATENOLOL [Concomitant]
     Indication: HYPERTENSIVE HEART DISEASE
     Dates: start: 20090407
  19. ATENOLOL [Concomitant]
     Indication: HYPERTENSION
     Dates: start: 20090407
  20. ATENOLOL [Concomitant]
     Indication: HYPERTENSIVE HEART DISEASE
     Dates: start: 20100902
  21. ATENOLOL [Concomitant]
     Indication: HYPERTENSION
     Dates: start: 20100902
  22. ATENOLOL [Concomitant]
     Indication: HYPERTENSIVE HEART DISEASE
     Route: 048
     Dates: start: 20111010
  23. ATENOLOL [Concomitant]
     Indication: HYPERTENSION
     Route: 048
     Dates: start: 20111010
  24. SIMVASTATION [Concomitant]
     Indication: HYPERLIPIDAEMIA
     Dates: start: 2010
  25. SIMVASTATION [Concomitant]
     Indication: HYPERLIPIDAEMIA
     Dates: start: 20100215
  26. SIMVASTATION [Concomitant]
     Indication: HYPERLIPIDAEMIA
     Dosage: 40 MG 1 TABLET EVERY EVENING ORALLY ONCE A DAY
     Route: 048
     Dates: start: 20101010
  27. ASPIRIN [Concomitant]
     Indication: CHEST PAIN
     Dates: start: 20100215
  28. ASPIRIN [Concomitant]
     Indication: CHEST PAIN
     Route: 048
     Dates: start: 20101010
  29. TYLENOL [Concomitant]
     Dosage: 2 30 500 MG AS DIRECTED
  30. TYLENOL [Concomitant]
     Dosage: PRN
     Dates: start: 20100215
  31. TYLENOL [Concomitant]
     Dosage: 325 MG 1 TABLET AS NEEDED ORALLY EVERY 6 HRS
     Route: 048
     Dates: start: 20111010
  32. ALBUTEROL SULFATE [Concomitant]
     Indication: ASTHMA
     Dosage: 0.083 PERCENT ML AS NEEDED
  33. ALBUTEROL SULFATE [Concomitant]
     Indication: ASTHMA
     Dosage: HFA 2 PUFFS QID
     Dates: start: 20100215
  34. ALBUTEROL SULFATE [Concomitant]
     Indication: ASTHMA
     Dosage: BY NEBULIZER 3 TO 4 TIMES A DAY
     Dates: start: 20100215
  35. ALBUTEROL SULFATE [Concomitant]
     Indication: ASTHMA
     Dosage: 108(90 BASE) MCG/ACT 2 PUFF INHALATION EVERY 6 HRS PRN
     Dates: start: 20111024
  36. ZYRTEC D [Concomitant]
     Indication: ASTHMA
     Dosage: 5-120 MG ONCE A DAY
     Dates: start: 20100902
  37. ZYRTEC D [Concomitant]
     Indication: MULTIPLE ALLERGIES
     Dosage: 5-120 MG ONCE A DAY
     Dates: start: 20100902
  38. ZYRTEC D [Concomitant]
     Indication: NASAL CONGESTION
     Dosage: 5-120 MG ONCE A DAY
     Dates: start: 20100902
  39. ZYRTEC D [Concomitant]
     Indication: ASTHMA
     Route: 048
     Dates: start: 20111010
  40. ZYRTEC D [Concomitant]
     Indication: MULTIPLE ALLERGIES
     Route: 048
     Dates: start: 20111010
  41. ZYRTEC D [Concomitant]
     Indication: NASAL CONGESTION
     Route: 048
     Dates: start: 20111010
  42. EXFORGE HCT [Concomitant]
     Indication: HYPERTENSIVE HEART DISEASE
     Dosage: 10-160-12.5MG ONCE A DAY
     Dates: start: 20100902
  43. EXFORGE HCT [Concomitant]
     Indication: HYPERTENSION
     Dosage: 10-160-12.5MG ONCE A DAY
     Dates: start: 20100902
  44. GLIMEPIRIDE [Concomitant]
     Indication: DIABETES MELLITUS
  45. GLIMEPIRIDE [Concomitant]
     Indication: DIABETES MELLITUS
     Dosage: 1MG 1TABLET DAILY WITH BREAKFAST OR THE FIRST MAIN MEAL
     Route: 048
     Dates: start: 20111024
  46. GLIMEPIRIDE [Concomitant]
     Indication: DIABETES MELLITUS
     Dosage: 1MG 1TABLET WITH BREAKFAST OR THE FIRST MAIN MEAL OF THE DAY ORALLY ONCE A DAY
     Route: 048
     Dates: start: 20111010
  47. MECLIZINE/ANTIVERT [Concomitant]
     Dates: start: 20111010
  48. ESTRADERM [Concomitant]
     Dates: start: 20081208
  49. ESTRADERM [Concomitant]
     Dosage: 0.05MG ONE 24-HOUR PATCH TO SKIN A DAY
     Dates: start: 20100902
  50. ZOFRAN ODT [Concomitant]
  51. CLONAZEPAM [Concomitant]
  52. IBUPROFEN/ADVIL [Concomitant]
     Dates: start: 20080826
  53. IBUPROFEN/ADVIL [Concomitant]
     Dosage: AS NEEDED
     Dates: start: 20100215
  54. IBUPROFEN/ADVIL [Concomitant]
     Dates: start: 20100902
  55. IBUPROFEN/ADVIL [Concomitant]
     Route: 048
     Dates: start: 20111010
  56. CITALOPRAM HBR [Concomitant]
     Dates: start: 20081128
  57. CITALOPRAM HBR [Concomitant]
     Dates: start: 20100215
  58. HYDROCODONE W/APAP [Concomitant]
     Dosage: 5/500
     Dates: start: 20081128
  59. LISINOPRIL [Concomitant]
     Dates: start: 20081205
  60. LISINOPRIL [Concomitant]
     Dates: start: 20100215
  61. CARISOPRODOL [Concomitant]
     Dates: start: 20090203
  62. LEVAQUIN [Concomitant]
     Dates: start: 20080918
  63. FLUCONAZOLE [Concomitant]
     Dates: start: 20090212
  64. METRONIDAZOLE [Concomitant]
     Dates: start: 20090218
  65. NASONEX [Concomitant]
  66. NASONEX [Concomitant]
     Dosage: AS NEEDED
     Dates: start: 20100215
  67. BENADRYL [Concomitant]
     Dates: start: 20100902
  68. BENADRYL [Concomitant]
     Dates: start: 20100215
  69. BENADRYL [Concomitant]
     Dates: start: 20111010
  70. ADVAIR DISKUS [Concomitant]
     Indication: ASTHMA
     Dosage: 250-50 MCG/DOSE 1 EVERY 12 HOURS
     Dates: start: 20100902
  71. ALENDRONATE SODIUM [Concomitant]
     Dosage: 70 MG 1 TABLET ONCE A WEEK
     Dates: start: 20100902
  72. ALENDRONATE SODIUM [Concomitant]
     Dosage: 70 MG 1 TABLET ONCE Q WEEK
     Route: 048
     Dates: start: 20111010
  73. MAXAZIDE [Concomitant]
     Indication: HYPERTENSIVE HEART DISEASE
     Dosage: 37.5/25 QD
     Dates: start: 20100215
  74. MAXAZIDE [Concomitant]
     Indication: HYPERTENSION
     Dosage: 37.5/25 QD
     Dates: start: 20100215
  75. EXFORGE [Concomitant]
     Indication: HYPERTENSION
     Dates: start: 20100902
  76. CIPRO  HC [Concomitant]
  77. CALCIUM CALTRATE [Concomitant]
     Dosage: 600 DAILY
     Dates: start: 20100215
  78. VITAMIN C [Concomitant]
     Dosage: ONCE A DAY
     Dates: start: 20100215
  79. PRAVASTATIN SODIUM TABLET [Concomitant]
     Indication: HYPERLIPIDAEMIA
  80. ZITHROMAX Z PAK [Concomitant]
     Dosage: 250 MG 2 TABLET ON THE FIRST DAY THEN ONE TABLET FOR 4 DAYS ORALLY ONCE A DAY
     Dates: start: 20111010
  81. TRIAMTERENE HCTZ [Concomitant]
     Dosage: 37.5 - 25 MG 1 TABLET IN THE MORNING ORALLY ONCE A DAY
     Route: 048
     Dates: start: 20111010
  82. SUDAFED [Concomitant]
     Route: 048
     Dates: start: 20111010
  83. POTASSIUM CHLORIDE [Concomitant]
     Route: 048
     Dates: start: 20111010
  84. CALCITRIOL [Concomitant]
     Route: 048
     Dates: start: 20111010

REACTIONS (13)
  - Transient ischaemic attack [Unknown]
  - Cerebrovascular accident [Unknown]
  - Osteoporosis [Unknown]
  - Foot fracture [Unknown]
  - Cardiac disorder [Unknown]
  - Migraine [Unknown]
  - Anxiety [Unknown]
  - Vitamin D deficiency [Unknown]
  - Vertigo [Unknown]
  - Depression [Unknown]
  - Osteoarthritis [Unknown]
  - Tricuspid valve disease [Unknown]
  - Angina pectoris [Unknown]
